FAERS Safety Report 9716535 (Version 4)
Quarter: 2014Q1

REPORT INFORMATION
  Report Type: Spontaneous
  Country: GB (occurrence: None)
  Receive Date: 20131125
  Receipt Date: 20140128
  Transmission Date: 20141002
  Serious: Yes (Death, Life-Threatening, Hospitalization)
  Sender: FDA-Public Use
  Company Number: GB-JNJFOC-20131112770

PATIENT
  Age: 81 Year
  Sex: Male
  Weight: 83 kg

DRUGS (13)
  1. DACOGEN [Suspect]
     Indication: MYELODYSPLASTIC SYNDROME
     Route: 042
     Dates: start: 20130916, end: 20130920
  2. ALLOPURINOL [Concomitant]
  3. ACICLOVIR (ACICLOVIR) [Concomitant]
  4. ONDANSETRON (ONDANSETRON) [Concomitant]
  5. FLUCONAZOLE (FLUCONAZOLE) [Concomitant]
  6. BISOPROLOL (BISOPROLOL) [Concomitant]
  7. ASPIRIN (ACETYLSALICYLIC ACID) [Concomitant]
  8. SIMVASTATIN (SIMVASTATIN) [Concomitant]
  9. GLICLAZIDE (GLICLAZIDE) [Concomitant]
  10. METFORMIN (METFORMIN) [Concomitant]
  11. RAMIPRIL (RAMIPRIL) [Concomitant]
  12. PREGABALIN (PREGABALIN) [Concomitant]
  13. SODIUM VALPROATE (VALPROATE SODIUM) [Concomitant]

REACTIONS (6)
  - Convulsion [None]
  - Neutropenia [None]
  - Sepsis [None]
  - Lower respiratory tract infection [None]
  - Pneumonia [None]
  - White blood cell count decreased [None]
